FAERS Safety Report 13643448 (Version 1)
Quarter: 2017Q2

REPORT INFORMATION
  Report Type: Spontaneous
  Country: UA (occurrence: UA)
  Receive Date: 20170612
  Receipt Date: 20170612
  Transmission Date: 20170830
  Serious: Yes (Other)
  Sender: FDA-Public Use
  Company Number: UA-PFIZER INC-2017253340

PATIENT
  Age: 72 Year
  Sex: Male

DRUGS (3)
  1. FUROSEMID [Concomitant]
     Active Substance: FUROSEMIDE
  2. LYRICA [Suspect]
     Active Substance: PREGABALIN
     Indication: SCIATICA
     Dosage: 75 MG, 2X/DAY
  3. CELEBREX [Suspect]
     Active Substance: CELECOXIB
     Indication: SCIATICA
     Dosage: 200 MG, SINGLE

REACTIONS (1)
  - Ischaemic stroke [Unknown]
